FAERS Safety Report 9980907 (Version 1)
Quarter: 2014Q1

REPORT INFORMATION
  Report Type: Spontaneous
  Country: US (occurrence: US)
  Receive Date: 20140307
  Receipt Date: 20140307
  Transmission Date: 20141002
  Serious: No
  Sender: FDA-Public Use
  Company Number: US-GLAXOSMITHKLINE-A1023635A

PATIENT
  Age: 65 Year
  Sex: Female
  Weight: 59.5 kg

DRUGS (16)
  1. REQUIP [Suspect]
     Indication: PRODUCT USED FOR UNKNOWN INDICATION
     Route: 065
  2. AMPYRA [Suspect]
     Indication: PRODUCT USED FOR UNKNOWN INDICATION
     Dosage: 10MG TWICE PER DAY
     Route: 065
     Dates: start: 201212
  3. COENZYME Q10 [Concomitant]
  4. COPAXONE [Concomitant]
  5. BIOTIN [Concomitant]
  6. VITAMIN D [Concomitant]
  7. VITAMIN B COMPLEX [Concomitant]
  8. VITAMIN E [Concomitant]
  9. ROYAL JELLY [Concomitant]
  10. CALCIUM CITRATE + CHOLECALCIFEROL [Concomitant]
  11. SIMVASTATIN [Concomitant]
  12. WELLBUTRIN [Concomitant]
  13. LEVOTHYROXINE [Concomitant]
  14. CALCIUM CARBONATE [Concomitant]
  15. MAGNESIUM [Concomitant]
  16. MULTIVITAMIN [Concomitant]

REACTIONS (3)
  - Malaise [Recovered/Resolved]
  - Diarrhoea [Recovered/Resolved]
  - Nausea [Recovered/Resolved]
